FAERS Safety Report 10158458 (Version 1)
Quarter: 2014Q2

REPORT INFORMATION
  Report Type: Report from Study
  Country: AR (occurrence: AR)
  Receive Date: 20140507
  Receipt Date: 20140507
  Transmission Date: 20141212
  Serious: Yes (Death)
  Sender: FDA-Public Use
  Company Number: PHHY2014AR055269

PATIENT
  Age: 89 Year
  Sex: Female

DRUGS (2)
  1. DIOVAN D [Suspect]
     Dosage: 1 DF (320/25 MG), UNK
     Route: 048
  2. DIOVAN TRIPLE [Suspect]
     Dosage: 1 DF (160 MG), UNK
     Route: 048

REACTIONS (1)
  - Death [Fatal]
